FAERS Safety Report 5581510-0 (Version None)
Quarter: 2008Q1

REPORT INFORMATION
  Report Type: 
  Country: None (occurrence: None)
  Receive Date: 20080104
  Receipt Date: 20071227
  Transmission Date: 20080703
  Serious: Yes (Other)
  Sender: FDA-Public Use
  Company Number: US-ROCHE-535415

PATIENT
  Sex: Female
  Weight: 2.9 kg

DRUGS (3)
  1. FORTOVASE [Suspect]
     Indication: DRUG USE FOR UNKNOWN INDICATION
     Dosage: START AT 16 WEEKS GESTATIONAL AGE
  2. COMBIVIR [Suspect]
     Indication: DRUG USE FOR UNKNOWN INDICATION
     Dosage: START AT 16 WEEKS GESTATIONAL AGE, ^2^ DAILY
  3. NORVIR [Suspect]
     Indication: DRUG USE FOR UNKNOWN INDICATION
     Dosage: START AT 16 WEEKS GESTATIONAL AGE

REACTIONS (1)
  - PREMATURE RUPTURE OF MEMBRANES [None]
